FAERS Safety Report 7451045-9 (Version None)
Quarter: 2011Q2

REPORT INFORMATION
  Report Type: 
  Country: None (occurrence: None)
  Receive Date: 20110429
  Receipt Date: 20110429
  Transmission Date: 20111010
  Serious: No
  Sender: FDA-Public Use
  Company Number: None

PATIENT
  Sex: Male
  Weight: 96.8 kg

DRUGS (1)
  1. NEXIUM [Suspect]
     Indication: BARRETT'S OESOPHAGUS
     Dosage: 40MG 1 PO BID ORAL/CAPSULE
     Route: 048
     Dates: start: 20101210

REACTIONS (1)
  - PRODUCT SUBSTITUTION ISSUE [None]
